FAERS Safety Report 17841554 (Version 6)
Quarter: 2021Q1

REPORT INFORMATION
  Report Type: Spontaneous
  Country: GB (occurrence: GB)
  Receive Date: 20200529
  Receipt Date: 20210317
  Transmission Date: 20210419
  Serious: Yes (Hospitalization, Other)
  Sender: FDA-Public Use
  Company Number: GB-BAUSCH-BL-2020-015418

PATIENT
  Age: 59 Year
  Sex: Male

DRUGS (34)
  1. LORAZEPAM. [Suspect]
     Active Substance: LORAZEPAM
     Indication: SCHIZOPHRENIA
     Route: 048
  2. HALOPERIDOL. [Suspect]
     Active Substance: HALOPERIDOL
     Indication: PRODUCT USED FOR UNKNOWN INDICATION
     Route: 065
  3. CLOPIXOL [Suspect]
     Active Substance: ZUCLOPENTHIXOL
     Dosage: WEEKLY
     Route: 030
     Dates: start: 20040217, end: 20040601
  4. CLOZARIL [Suspect]
     Active Substance: CLOZAPINE
     Indication: SCHIZOPHRENIA
     Route: 048
     Dates: start: 20100823
  5. CLOZARIL [Suspect]
     Active Substance: CLOZAPINE
     Dosage: 100 MILLIGRAM, AM
     Route: 065
  6. OLANZAPINE. [Suspect]
     Active Substance: OLANZAPINE
     Indication: SCHIZOPHRENIA
     Route: 065
     Dates: start: 20040217
  7. OLANZAPINE. [Suspect]
     Active Substance: OLANZAPINE
     Route: 065
  8. CLOPIXOL [Suspect]
     Active Substance: ZUCLOPENTHIXOL
     Dosage: 300 MILLIGRAM IM WEEKLY
     Route: 030
     Dates: start: 20091009
  9. CLOPIXOL [Suspect]
     Active Substance: ZUCLOPENTHIXOL
     Route: 065
  10. CLOZARIL [Suspect]
     Active Substance: CLOZAPINE
     Dosage: UNK
     Route: 048
     Dates: start: 20200521, end: 2020
  11. CLOZARIL [Suspect]
     Active Substance: CLOZAPINE
     Dosage: 100 MILLIGRAM, AM
     Route: 065
  12. RISPERIDONE. [Suspect]
     Active Substance: RISPERIDONE
     Indication: SCHIZOPHRENIA
     Dosage: 6 MILLIGRAM, QD (3 MG, 2X/DAY)
     Route: 065
  13. RISPERIDONE. [Suspect]
     Active Substance: RISPERIDONE
     Route: 065
  14. LITHIUM. [Suspect]
     Active Substance: LITHIUM
     Indication: PRODUCT USED FOR UNKNOWN INDICATION
     Route: 065
  15. CLOZARIL [Suspect]
     Active Substance: CLOZAPINE
     Dosage: 275 MILLIGRAM, PM
     Route: 065
  16. CLOZARIL [Suspect]
     Active Substance: CLOZAPINE
     Dosage: UNK
     Route: 048
     Dates: start: 20201207
  17. CLOZARIL [Suspect]
     Active Substance: CLOZAPINE
     Dosage: UNK
     Route: 048
     Dates: start: 20201223, end: 20201223
  18. CLOPIXOL [Suspect]
     Active Substance: ZUCLOPENTHIXOL
     Indication: PRODUCT USED FOR UNKNOWN INDICATION
     Route: 065
     Dates: start: 20030204, end: 20040217
  19. CLOZARIL [Suspect]
     Active Substance: CLOZAPINE
     Dosage: UNK UNK, AM
     Route: 065
     Dates: start: 2011
  20. OLANZAPINE. [Suspect]
     Active Substance: OLANZAPINE
     Route: 065
     Dates: start: 20080823
  21. OLANZAPINE. [Suspect]
     Active Substance: OLANZAPINE
     Route: 065
  22. CLOPIXOL [Suspect]
     Active Substance: ZUCLOPENTHIXOL
     Route: 065
     Dates: start: 20040601, end: 20041018
  23. RISPERIDONE. [Suspect]
     Active Substance: RISPERIDONE
     Dosage: 1 MILLIGRAM QD
     Route: 065
  24. CLOZARIL [Suspect]
     Active Substance: CLOZAPINE
     Dosage: 200 MILLIGRAM, BID
     Route: 065
  25. RISPERIDONE. [Suspect]
     Active Substance: RISPERIDONE
     Dosage: 4 MILLIGRAM, QD (2 MG, 2X/DAY)
     Route: 065
  26. RISPERIDONE. [Suspect]
     Active Substance: RISPERIDONE
     Dosage: 2 MILLIGRAM, BID
     Route: 065
  27. CLOZARIL [Suspect]
     Active Substance: CLOZAPINE
     Dosage: 400 MILLIGRAM, QD (200 MILLIGRAM, BID)
     Route: 065
  28. CLOZARIL [Suspect]
     Active Substance: CLOZAPINE
     Dosage: 200 MILLIGRAM, BID
     Route: 048
     Dates: start: 20191209, end: 20191223
  29. CLOZARIL [Suspect]
     Active Substance: CLOZAPINE
     Dosage: MIDDAY
     Route: 065
  30. OLANZAPINE. [Suspect]
     Active Substance: OLANZAPINE
     Route: 065
     Dates: start: 20060704
  31. ARIPIPRAZOL [Suspect]
     Active Substance: ARIPIPRAZOLE
     Indication: SCHIZOPHRENIA
     Route: 065
  32. CHLORPROMAZINE. [Suspect]
     Active Substance: CHLORPROMAZINE
     Indication: PRODUCT USED FOR UNKNOWN INDICATION
     Route: 065
  33. RISPERIDONE. [Suspect]
     Active Substance: RISPERIDONE
     Dosage: 3 MILLIGRAM, BID
     Route: 065
  34. CLOZARIL [Suspect]
     Active Substance: CLOZAPINE
     Dosage: 300 MILLIGRAM, PM

REACTIONS (14)
  - Affective disorder [Recovered/Resolved]
  - Fatigue [Unknown]
  - Extrapyramidal disorder [Unknown]
  - Psychotic disorder [Recovered/Resolved]
  - Neutropenia [Recovered/Resolved]
  - Leukopenia [Recovered/Resolved]
  - Delusion of grandeur [Unknown]
  - Neutrophil count increased [Unknown]
  - Schizophrenia [Not Recovered/Not Resolved]
  - Lymphocyte count decreased [Unknown]
  - Off label use [Unknown]
  - Hospitalisation [Unknown]
  - Hallucination, auditory [Unknown]
  - Platelet count decreased [Recovered/Resolved]

NARRATIVE: CASE EVENT DATE: 2019
